FAERS Safety Report 24770392 (Version 1)
Quarter: 2024Q4

REPORT INFORMATION
  Report Type: Spontaneous
  Country: US (occurrence: US)
  Receive Date: 20241224
  Receipt Date: 20241224
  Transmission Date: 20250114
  Serious: No
  Sender: ROCHE
  Company Number: US-ROCHE-10000162441

PATIENT
  Age: 10 Year
  Sex: Male

DRUGS (1)
  1. HEMLIBRA [Suspect]
     Active Substance: EMICIZUMAB-KXWH
     Indication: Von Willebrand^s disease
     Dosage: STRENGTH: 60MG/0.4ML
     Route: 058
     Dates: start: 202304

REACTIONS (3)
  - Head injury [Unknown]
  - Haemorrhage [Recovered/Resolved]
  - Off label use [Unknown]

NARRATIVE: CASE EVENT DATE: 20241122
